FAERS Safety Report 6638808-4 (Version None)
Quarter: 2010Q1

REPORT INFORMATION
  Report Type: 
  Country: None (occurrence: None)
  Receive Date: 20100312
  Receipt Date: 20100225
  Transmission Date: 20100710
  Serious: Yes (Other)
  Sender: FDA-Public Use
  Company Number: 007192

PATIENT
  Sex: Female
  Weight: 74 kg

DRUGS (10)
  1. ALPROSTADIL [Suspect]
     Indication: PERIPHERAL ISCHAEMIA
     Dosage: 40 UG BID INTRAVENOUS (NOT OTHERWISE SPECIFIED)
     Route: 042
     Dates: start: 20100211
  2. PROMEDOL [Concomitant]
  3. DIPYRONE INJ [Concomitant]
  4. ALPRAZOLAM [Concomitant]
  5. NICOTINIC ACID [Concomitant]
  6. ACTOVEGIN [Concomitant]
  7. ACTRAPID [Concomitant]
  8. INSULIN PROTAPHAN HUMAN [Concomitant]
  9. KETOROLAC TROMETHAMINE [Concomitant]
  10. PROTAPHANE [Concomitant]

REACTIONS (1)
  - BURSITIS [None]
